FAERS Safety Report 14970608 (Version 2)
Quarter: 2018Q2

REPORT INFORMATION
  Report Type: Spontaneous
  Country: HU (occurrence: HU)
  Receive Date: 20180604
  Receipt Date: 20180607
  Transmission Date: 20180711
  Serious: Yes (Other)
  Sender: FDA-Public Use
  Company Number: HU-PFIZER INC-2018169342

PATIENT
  Age: 80 Year
  Sex: Male

DRUGS (5)
  1. MERAMYL [Concomitant]
     Dosage: UNK
  2. XALKORI [Suspect]
     Active Substance: CRIZOTINIB
     Indication: LUNG NEOPLASM MALIGNANT
     Dosage: 250 MG, 2X/DAY
     Dates: start: 201803
  3. ADIMET [Concomitant]
     Dosage: UNK
  4. AMLODIPIN /00972401/ [Concomitant]
     Active Substance: AMLODIPINE BESYLATE
     Dosage: UNK
  5. KARDOGREL [Concomitant]
     Dosage: UNK

REACTIONS (8)
  - Decreased appetite [Recovered/Resolved]
  - Tracheal oedema [Recovered/Resolved]
  - Hiccups [Not Recovered/Not Resolved]
  - Eructation [Recovered/Resolved]
  - Weight decreased [Recovered/Resolved]
  - Constipation [Recovered/Resolved]
  - Dysgeusia [Recovered/Resolved]
  - Dizziness [Recovered/Resolved]

NARRATIVE: CASE EVENT DATE: 2018
